FAERS Safety Report 4314121-5 (Version None)
Quarter: 2004Q1

REPORT INFORMATION
  Report Type: 
  Country: None (occurrence: None)
  Receive Date: 20040308
  Receipt Date: 20040308
  Transmission Date: 20041129
  Serious: Yes (Other)
  Sender: FDA-Public Use
  Company Number: None

PATIENT
  Age: 47 Year
  Sex: Female
  Weight: 62.5964 kg

DRUGS (2)
  1. VIOXX [Suspect]
     Indication: ARTHRITIS
     Dosage: 1 1 PER DAY ORAL
     Route: 048
     Dates: start: 20040123, end: 20040302
  2. ALESSE [Concomitant]

REACTIONS (1)
  - EXTRASYSTOLES [None]
